FAERS Safety Report 12865828 (Version 2)
Quarter: 2017Q2

REPORT INFORMATION
  Report Type: Spontaneous
  Country: US (occurrence: US)
  Receive Date: 20161020
  Receipt Date: 20170420
  Transmission Date: 20170830
  Serious: No
  Sender: FDA-Public Use
  Company Number: GXBR2016US002995

PATIENT
  Age: 34 Year
  Sex: Female
  Weight: 80.27 kg

DRUGS (5)
  1. MENOPUR [Concomitant]
     Active Substance: FOLLITROPIN\LUTEINIZING HORMONE
     Indication: BLOOD FOLLICLE STIMULATING HORMONE
     Dosage: 150 IU, QD
     Route: 058
     Dates: start: 20160821, end: 20160831
  2. CETROTIDE ^ASTA MEDICA^ [Concomitant]
     Indication: PREVENTION OF PREMATURE OVULATION
     Dosage: 0.25 MG, QD
     Route: 058
     Dates: start: 20160828, end: 20160831
  3. DEXAMETHASONE. [Concomitant]
     Active Substance: DEXAMETHASONE
     Indication: ADRENAL SUPPRESSION
     Dosage: 0.5 MG, QD
     Route: 048
     Dates: start: 20160821, end: 20160831
  4. GONAL-F [Concomitant]
     Active Substance: FOLLITROPIN
     Indication: BLOOD FOLLICLE STIMULATING HORMONE
     Dosage: 300 IU, QD
     Route: 058
     Dates: start: 20160821, end: 20160831
  5. LEUPROLIDE ACETATE. [Suspect]
     Active Substance: LEUPROLIDE ACETATE
     Indication: OOCYTE HARVEST
     Dosage: 4 MG, BID
     Route: 058
     Dates: start: 20160831, end: 20160901

REACTIONS (3)
  - Drug ineffective [Recovered/Resolved]
  - Blood luteinising hormone decreased [Recovered/Resolved]
  - Poor response to ovulation induction [Recovered/Resolved]

NARRATIVE: CASE EVENT DATE: 20160831
